FAERS Safety Report 21017110 (Version 1)
Quarter: 2022Q2

REPORT INFORMATION
  Report Type: Spontaneous
  Country: DE (occurrence: DE)
  Receive Date: 20220628
  Receipt Date: 20220628
  Transmission Date: 20220720
  Serious: Yes (Death, Other)
  Sender: FDA-Public Use
  Company Number: None

PATIENT
  Age: 88 Year
  Sex: Female

DRUGS (1)
  1. PAXLOVID [Suspect]
     Active Substance: NIRMATRELVIR\RITONAVIR
     Indication: COVID-19 treatment
     Dosage: 600MG/400MG DAILY DOSE
     Route: 048
     Dates: start: 20220602, end: 20220606

REACTIONS (6)
  - Drug ineffective [Fatal]
  - Coronavirus infection [Fatal]
  - Delirium [Fatal]
  - Blood creatine phosphokinase increased [Fatal]
  - Sepsis [Fatal]
  - Off label use [Unknown]

NARRATIVE: CASE EVENT DATE: 20220601
